FAERS Safety Report 9922727 (Version 1)
Quarter: 2014Q1

REPORT INFORMATION
  Report Type: Report from Study
  Country: US (occurrence: US)
  Receive Date: 20140225
  Receipt Date: 20140225
  Transmission Date: 20141002
  Serious: Yes (Hospitalization, Other)
  Sender: FDA-Public Use
  Company Number: US-ABBVIE-14P-163-1204918-00

PATIENT
  Age: 31 Year
  Sex: Female

DRUGS (3)
  1. HUMIRA [Suspect]
     Indication: CROHN^S DISEASE
     Route: 058
     Dates: start: 201312, end: 201312
  2. HUMIRA [Suspect]
     Route: 058
     Dates: start: 201401, end: 201401
  3. OXYCODONE [Concomitant]
     Indication: PAIN
     Dosage: 1 OR 2 EVERY 3  HOURS AS NEEDED

REACTIONS (3)
  - Rectal haemorrhage [Recovering/Resolving]
  - Ulcer [Recovering/Resolving]
  - Dehydration [Recovered/Resolved]
